FAERS Safety Report 6789612-8 (Version None)
Quarter: 2010Q2

REPORT INFORMATION
  Report Type: 
  Country: None (occurrence: None)
  Receive Date: 20100624
  Receipt Date: 20100614
  Transmission Date: 20101027
  Serious: No
  Sender: FDA-Public Use
  Company Number: US-BIOGENIDEC-2010BI020593

PATIENT
  Age: 73 Year
  Sex: Female

DRUGS (2)
  1. TYSABRI [Suspect]
     Indication: MULTIPLE SCLEROSIS
     Route: 042
     Dates: start: 20061016, end: 20070416
  2. TYSABRI [Suspect]
     Route: 042
     Dates: start: 20091113

REACTIONS (1)
  - HEARING IMPAIRED [None]
